FAERS Safety Report 5502372-3 (Version None)
Quarter: 2007Q4

REPORT INFORMATION
  Report Type: 
  Country: None (occurrence: None)
  Receive Date: 20071030
  Receipt Date: 20071019
  Transmission Date: 20080405
  Serious: Yes (Other)
  Sender: FDA-Public Use
  Company Number: CA-PFIZER INC-2007089518

PATIENT
  Age: 64 Year
  Sex: Male

DRUGS (5)
  1. LIPITOR [Suspect]
     Route: 048
  2. PLAVIX [Concomitant]
     Route: 048
  3. ASPIRIN [Concomitant]
     Route: 048
  4. ALTACE [Concomitant]
     Dosage: FREQ:ON AND OFF
     Route: 048
  5. CENTRUM [Concomitant]
     Route: 048

REACTIONS (5)
  - ANOREXIA [None]
  - LUNG INFECTION [None]
  - NAUSEA [None]
  - PAIN [None]
  - WEIGHT DECREASED [None]
